FAERS Safety Report 16632548 (Version 1)
Quarter: 2019Q3

REPORT INFORMATION
  Report Type: Spontaneous
  Country: US (occurrence: US)
  Receive Date: 20190725
  Receipt Date: 20190725
  Transmission Date: 20191004
  Serious: No
  Sender: FDA-Public Use
  Company Number: US-ABBVIE-19S-163-2641371-00

PATIENT
  Age: 75 Year

DRUGS (1)
  1. SYNTHROID [Suspect]
     Active Substance: LEVOTHYROXINE SODIUM
     Indication: PRODUCT USED FOR UNKNOWN INDICATION
     Route: 048

REACTIONS (9)
  - Stress [Unknown]
  - Feeling abnormal [Recovered/Resolved]
  - Ocular discomfort [Recovered/Resolved]
  - Pain [Unknown]
  - Hot flush [Recovered/Resolved]
  - Palpitations [Recovered/Resolved]
  - Hypertension [Recovered/Resolved]
  - Head discomfort [Recovered/Resolved]
  - Insomnia [Recovered/Resolved]
